FAERS Safety Report 6491346-4 (Version None)
Quarter: 2009Q4

REPORT INFORMATION
  Report Type: 
  Country: None (occurrence: None)
  Receive Date: 20091211
  Receipt Date: 20091130
  Transmission Date: 20100525
  Serious: Yes (Hospitalization, Disabling, Other)
  Sender: FDA-Public Use
  Company Number: US-PFIZER INC-2009280979

PATIENT
  Sex: Female
  Weight: 72.562 kg

DRUGS (2)
  1. XANAX [Suspect]
     Indication: ANXIETY
     Dosage: UNK
     Dates: start: 19890101
  2. XANAX [Suspect]
     Indication: PANIC DISORDER

REACTIONS (2)
  - COMPLEX PARTIAL SEIZURES [None]
  - CONVULSION [None]
